FAERS Safety Report 13400032 (Version 4)
Quarter: 2017Q4

REPORT INFORMATION
  Report Type: Spontaneous
  Country: US (occurrence: US)
  Receive Date: 20170404
  Receipt Date: 20171221
  Transmission Date: 20180320
  Serious: Yes (Life-Threatening, Hospitalization, Other)
  Sender: FDA-Public Use
  Company Number: US-SUN PHARMACEUTICAL INDUSTRIES LTD-2017US-137496

PATIENT
  Age: 39 Year
  Sex: Female

DRUGS (1)
  1. LOPERAMIDE [Suspect]
     Active Substance: LOPERAMIDE
     Indication: PRODUCT USED FOR UNKNOWN INDICATION
     Dosage: LARGE AMOUNT OF LOPERAMIDE, DAILY
     Route: 048

REACTIONS (4)
  - Seizure like phenomena [Unknown]
  - Toxicity to various agents [Recovered/Resolved]
  - Torsade de pointes [Recovered/Resolved]
  - Drug abuse [Recovered/Resolved]
